FAERS Safety Report 9033678 (Version 1)
Quarter: 2013Q1

REPORT INFORMATION
  Report Type: Spontaneous
  Country: US (occurrence: US)
  Receive Date: 20130128
  Receipt Date: 20130128
  Transmission Date: 20140127
  Serious: Yes (Hospitalization)
  Sender: FDA-Public Use
  Company Number: US-AMGEN-USASP2012077404

PATIENT
  Age: 53 Year
  Sex: Female

DRUGS (3)
  1. ENBREL [Suspect]
     Indication: RHEUMATOID ARTHRITIS
     Dosage: 50 MG, QWK
     Dates: end: 201112
  2. PREDNISONE [Concomitant]
     Dosage: 8 UNK, UNK
     Dates: start: 201112
  3. METHOTREXATE [Concomitant]
     Dosage: 17.5 UNK, UNK

REACTIONS (6)
  - Lung neoplasm malignant [Recovered/Resolved]
  - Dyspnoea [Not Recovered/Not Resolved]
  - Lung disorder [Recovered/Resolved]
  - Weight increased [Not Recovered/Not Resolved]
  - Pain [Not Recovered/Not Resolved]
  - Spinal disorder [Not Recovered/Not Resolved]
